FAERS Safety Report 10747365 (Version 2)
Quarter: 2015Q2

REPORT INFORMATION
  Report Type: Spontaneous
  Country: US (occurrence: None)
  Receive Date: 20150120
  Receipt Date: 20150420
  Transmission Date: 20150821
  Serious: Yes (Other)
  Sender: FDA-Public Use
  Company Number: AEGR000919

PATIENT
  Age: 54 Year
  Sex: Female
  Weight: 98.9 kg

DRUGS (13)
  1. CALCIUM +D (CALCIUM CARBONATE, COLECALCIFEROL) [Concomitant]
  2. VITAMIN E (TOCOPHERYL ACETATE) [Concomitant]
  3. ASPIRIN (ACETYLSALICYLIC ACID) [Concomitant]
     Active Substance: ASPIRIN
  4. ALBUTEROL (SALBUTAMOL SULFATE) [Concomitant]
  5. ZETIA [Concomitant]
     Active Substance: EZETIMIBE
  6. WELCHOL (COLESEVELAM HYDROCHLORIDE) [Concomitant]
  7. CLARITIN [Concomitant]
     Active Substance: LORATADINE
  8. DULCOLAX (BISACODYL) [Concomitant]
     Active Substance: BISACODYL
  9. XANAX [Concomitant]
     Active Substance: ALPRAZOLAM
  10. JUXTAPID [Suspect]
     Active Substance: LOMITAPIDE MESYLATE
     Indication: TYPE IIA HYPERLIPIDAEMIA
     Route: 048
     Dates: start: 20140924, end: 20141230
  11. PROTONIX [Concomitant]
     Active Substance: PANTOPRAZOLE SODIUM
  12. MVI (VITAMINS NOS) [Concomitant]
  13. AMITRIPTYLINE (AMITRIPTYLINE HYDROCHLORIDE) [Concomitant]

REACTIONS (4)
  - Alanine aminotransferase increased [None]
  - Aspartate aminotransferase increased [None]
  - Therapy cessation [None]
  - Weight decreased [None]

NARRATIVE: CASE EVENT DATE: 201409
